FAERS Safety Report 20111746 (Version 1)
Quarter: 2021Q4

REPORT INFORMATION
  Report Type: Spontaneous
  Country: CA (occurrence: None)
  Receive Date: 20211125
  Receipt Date: 20211125
  Transmission Date: 20220303
  Serious: Yes (Death, Hospitalization)
  Sender: FDA-Public Use
  Company Number: CA-ROCHE-2703138

PATIENT
  Age: 59 Year
  Sex: Female
  Weight: 115 kg

DRUGS (11)
  1. TNKASE [Suspect]
     Active Substance: TENECTEPLASE
     Indication: Thrombolysis
     Dosage: ON 16/OCT/2020, SHE RECEVEIVED THE MOST RECENT DOSE PRIOR TO AE ONSET.
     Route: 042
     Dates: start: 20201016
  2. MIDAZOLAM [Concomitant]
     Active Substance: MIDAZOLAM
     Route: 042
     Dates: start: 20201016, end: 20201016
  3. ONDANSETRON [Concomitant]
     Active Substance: ONDANSETRON
     Indication: Nausea
     Route: 042
     Dates: start: 20201016, end: 20201016
  4. ONDANSETRON [Concomitant]
     Active Substance: ONDANSETRON
     Indication: Vomiting
  5. POTASSIUM CHLORIDE [Concomitant]
     Active Substance: POTASSIUM CHLORIDE
     Indication: Electrolyte imbalance
     Dates: start: 20201023, end: 20201023
  6. POTASSIUM CHLORIDE [Concomitant]
     Active Substance: POTASSIUM CHLORIDE
     Dates: start: 20201024, end: 20201024
  7. RAMIPRIL [Concomitant]
     Active Substance: RAMIPRIL
     Indication: Hypertension
     Dates: end: 20201024
  8. ROSUVASTATIN [Concomitant]
     Active Substance: ROSUVASTATIN
     Indication: Dyslipidaemia
     Dates: start: 20201024
  9. TINZAPARIN [Concomitant]
     Active Substance: TINZAPARIN
     Indication: Thrombosis prophylaxis
     Route: 058
     Dates: start: 20201017, end: 20201024
  10. VANCOMYCIN [Concomitant]
     Active Substance: VANCOMYCIN
     Indication: Pneumonia aspiration
     Route: 042
     Dates: start: 20201023, end: 20201024
  11. LIDOCAINE [Concomitant]
     Active Substance: LIDOCAINE
     Indication: Sedation
     Route: 042
     Dates: start: 20201016, end: 20201016

REACTIONS (7)
  - Pneumonia aspiration [Fatal]
  - Stress cardiomyopathy [Fatal]
  - Sepsis [Fatal]
  - Hyperglycaemia [Fatal]
  - Cardiac arrest [Not Recovered/Not Resolved]
  - Cerebrovascular accident [Not Recovered/Not Resolved]
  - Coma scale abnormal [Not Recovered/Not Resolved]

NARRATIVE: CASE EVENT DATE: 20201016
